FAERS Safety Report 8421548-9 (Version None)
Quarter: 2012Q2

REPORT INFORMATION
  Report Type: 
  Country: None (occurrence: None)
  Receive Date: 20120608
  Receipt Date: 20120529
  Transmission Date: 20120825
  Serious: No
  Sender: FDA-Public Use
  Company Number: US-B.I. PHARMACEUTICALS,INC./RIDGEFIELD-2012-BP-12598BP

PATIENT
  Sex: Male

DRUGS (11)
  1. LOPRESSOR [Concomitant]
  2. MULTI-VITAMIN [Concomitant]
  3. SPIRIVA [Suspect]
     Indication: DYSPNOEA
     Dosage: 18 MCG
     Route: 055
     Dates: start: 20120520, end: 20120527
  4. HYDRALAZINE HCL [Concomitant]
     Indication: HYPERTENSION
  5. ALLOPURINOL [Concomitant]
  6. FUROSEMIDE [Concomitant]
  7. PLAVIX [Concomitant]
  8. VITAMIN B1 TAB [Concomitant]
  9. CALCITRIOL [Concomitant]
  10. GABAPENTIN [Concomitant]
  11. VITAMIN B-12 [Concomitant]

REACTIONS (2)
  - RASH PRURITIC [None]
  - RASH [None]
